FAERS Safety Report 11103758 (Version 1)
Quarter: 2015Q2

REPORT INFORMATION
  Report Type: Spontaneous
  Country: US (occurrence: None)
  Receive Date: 20150508
  Receipt Date: 20150508
  Transmission Date: 20150821
  Serious: Yes (Other)
  Sender: FDA-Public Use
  Company Number: None

PATIENT
  Age: 84 Year
  Sex: Female
  Weight: 68.04 kg

DRUGS (1)
  1. XELODA [Suspect]
     Active Substance: CAPECITABINE
     Indication: BREAST CANCER
     Dosage: 3 PO AM AND 2 PO PM
     Route: 048
     Dates: start: 201412

REACTIONS (3)
  - Skin discolouration [None]
  - Palmar-plantar erythrodysaesthesia syndrome [None]
  - Paraesthesia [None]

NARRATIVE: CASE EVENT DATE: 20150225
